FAERS Safety Report 5835261-5 (Version None)
Quarter: 2008Q3

REPORT INFORMATION
  Report Type: 
  Country: None (occurrence: None)
  Receive Date: 20080806
  Receipt Date: 20080725
  Transmission Date: 20090109
  Serious: Yes (Hospitalization)
  Sender: FDA-Public Use
  Company Number: AU-ASTRAZENECA-2008AC02081

PATIENT
  Age: 58 Year
  Sex: Female

DRUGS (5)
  1. OMEPRAZOLE [Suspect]
  2. ACETAMINOPHEN [Suspect]
  3. COLCHICINE [Suspect]
     Dosage: REPORTED TO BE APPROXIMATELY 5 MG.
  4. ALLOPURINOL [Suspect]
  5. TELMISARTAN [Suspect]

REACTIONS (1)
  - INTENTIONAL OVERDOSE [None]
